FAERS Safety Report 6517145-2 (Version None)
Quarter: 2009Q4

REPORT INFORMATION
  Report Type: 
  Country: None (occurrence: None)
  Receive Date: 20091223
  Receipt Date: 20091215
  Transmission Date: 20100525
  Serious: Yes (Hospitalization)
  Sender: FDA-Public Use
  Company Number: IT-ELI_LILLY_AND_COMPANY-IT200912003250

PATIENT
  Sex: Male

DRUGS (3)
  1. ZYPREXA [Suspect]
     Dosage: 20 MG, UNKNOWN
     Route: 048
     Dates: start: 20090701, end: 20091212
  2. METHADON [Concomitant]
     Dosage: 130 MG, UNKNOWN
     Route: 048
     Dates: start: 20090701, end: 20091012
  3. LORAZEPAM [Concomitant]
     Dosage: 2.5 MG, UNKNOWN
     Route: 048
     Dates: start: 20090701, end: 20091012

REACTIONS (6)
  - ANXIETY [None]
  - BLOOD GLUCOSE INCREASED [None]
  - CONFUSIONAL STATE [None]
  - INSOMNIA [None]
  - SLEEP PHASE RHYTHM DISTURBANCE [None]
  - SOMNOLENCE [None]
